FAERS Safety Report 6162764-9 (Version None)
Quarter: 2009Q2

REPORT INFORMATION
  Report Type: 
  Country: None (occurrence: None)
  Receive Date: 20090421
  Receipt Date: 20080605
  Transmission Date: 20091009
  Serious: No
  Sender: FDA-Public Use
  Company Number: US-ASTRAZENECA-2008UW11414

PATIENT
  Age: 59 Year
  Sex: Female

DRUGS (5)
  1. TOPROL-XL [Suspect]
     Indication: MYOCARDIAL INFARCTION
     Route: 048
     Dates: start: 20070601
  2. LISINOPRIL [Concomitant]
     Route: 048
  3. PLAVIX [Concomitant]
  4. LIPITOR [Concomitant]
  5. NIASPAN [Concomitant]

REACTIONS (2)
  - HYPOAESTHESIA [None]
  - RASH [None]
